FAERS Safety Report 12874455 (Version 1)
Quarter: 2016Q4

REPORT INFORMATION
  Report Type: Spontaneous
  Country: BR (occurrence: BR)
  Receive Date: 20161021
  Receipt Date: 20161021
  Transmission Date: 20170207
  Serious: Yes (Hospitalization)
  Sender: FDA-Public Use
  Company Number: BR-ABBVIE-16P-020-1760802-00

PATIENT
  Sex: Male
  Weight: 160 kg

DRUGS (7)
  1. SYNTHROID [Suspect]
     Active Substance: LEVOTHYROXINE SODIUM
     Indication: HYPERTHYROIDISM
     Dosage: DAILY DOSE: 25 MCG; IN THE MORNING, AFTER FASTING
     Route: 048
     Dates: end: 2014
  2. CENTRUM [Concomitant]
     Active Substance: VITAMINS
     Indication: VITAMIN C DEFICIENCY
     Route: 048
  3. ADDERA D3 [Concomitant]
     Active Substance: CHOLECALCIFEROL
     Indication: VITAMIN D DEFICIENCY
     Route: 048
     Dates: start: 201506
  4. LIPIDIL [Suspect]
     Active Substance: FENOFIBRATE
     Indication: CARDIAC DISORDER
  5. LIPIDIL [Suspect]
     Active Substance: FENOFIBRATE
     Indication: BLOOD CHOLESTEROL INCREASED
     Dosage: DAILY DOSE: 160 MG; AT NIGHT
     Route: 048
     Dates: start: 2015
  6. SYNTHROID [Suspect]
     Active Substance: LEVOTHYROXINE SODIUM
     Dosage: DAILY DOSE: 100 MCG; IN THE MORNING, AFTER FASTING
     Route: 048
     Dates: start: 2014
  7. OLMETEC HCT [Concomitant]
     Active Substance: HYDROCHLOROTHIAZIDE\OLMESARTAN MEDOXOMIL
     Indication: PRODUCT USED FOR UNKNOWN INDICATION
     Dosage: 1 TABLET; FORM STRENGTH: 20/12.5 MG; AT NIGHT
     Route: 048
     Dates: start: 2011

REACTIONS (3)
  - Depression [Not Recovered/Not Resolved]
  - Product use issue [Unknown]
  - Suicidal ideation [Not Recovered/Not Resolved]
